FAERS Safety Report 6826604-4 (Version None)
Quarter: 2010Q3

REPORT INFORMATION
  Report Type: 
  Country: None (occurrence: None)
  Receive Date: 20100709
  Receipt Date: 20100707
  Transmission Date: 20110219
  Serious: Yes (Hospitalization)
  Sender: FDA-Public Use
  Company Number: US-GILEAD-2010-0029893

PATIENT
  Sex: Female

DRUGS (17)
  1. LETAIRIS [Suspect]
     Indication: PULMONARY ARTERIAL HYPERTENSION
     Route: 048
     Dates: start: 20090916
  2. COUMADIN [Concomitant]
  3. TORSEMIDE [Concomitant]
  4. SPIRONOLACTONE [Concomitant]
  5. DILTIAZEM [Concomitant]
  6. DIGOXIN [Concomitant]
  7. ADVAIR DISKUS 100/50 [Concomitant]
  8. ALBUTEROL [Concomitant]
  9. SINGULAIR [Concomitant]
  10. FLONASE [Concomitant]
  11. METFORMIN HCL [Concomitant]
  12. ACTOS [Concomitant]
  13. OMEPRAZOLE [Concomitant]
  14. CLONAZEPAM [Concomitant]
  15. MIRAPEX [Concomitant]
  16. ALENDRONATE [Concomitant]
  17. TRAMADOL [Concomitant]

REACTIONS (5)
  - ASTHMA [None]
  - DYSPNOEA [None]
  - FATIGUE [None]
  - IRON DEFICIENCY ANAEMIA [None]
  - PNEUMONIA [None]
